FAERS Safety Report 7632824-1 (Version None)
Quarter: 2011Q3

REPORT INFORMATION
  Report Type: 
  Country: None (occurrence: None)
  Receive Date: 20110725
  Receipt Date: 20110714
  Transmission Date: 20111222
  Serious: Yes (Other)
  Sender: FDA-Public Use
  Company Number: US-BAYER-2011-005074

PATIENT
  Age: 26 Year
  Sex: Female
  Weight: 83.9 kg

DRUGS (7)
  1. GLUCOPHAGE [Concomitant]
  2. PRENATE GT [Concomitant]
  3. PROTID [Concomitant]
  4. FERROUS SULFATE TAB [Concomitant]
  5. YASMIN [Suspect]
     Indication: CONTRACEPTION
     Dosage: UNK
     Dates: start: 20031204, end: 20050826
  6. NAPROXEN [Concomitant]
  7. METFORMIN HCL [Concomitant]

REACTIONS (6)
  - EMOTIONAL DISTRESS [None]
  - PAIN [None]
  - CHOLELITHIASIS [None]
  - CHOLECYSTITIS CHRONIC [None]
  - INJURY [None]
  - GALLBLADDER DISORDER [None]
